FAERS Safety Report 9611985 (Version 2)
Quarter: 2013Q4

REPORT INFORMATION
  Report Type: Spontaneous
  Country: GB (occurrence: GB)
  Receive Date: 20131010
  Receipt Date: 20131021
  Transmission Date: 20140711
  Serious: Yes (Other)
  Sender: FDA-Public Use
  Company Number: GB-B.I. PHARMACEUTICALS,INC./RIDGEFIELD-2013-BI-30984UK

PATIENT
  Age: 51 Year
  Sex: Female
  Weight: 80 kg

DRUGS (5)
  1. LINAGLIPTIN [Suspect]
     Dosage: 5 MG
     Route: 048
     Dates: start: 20130417, end: 20130715
  2. GLICLAZIDE [Concomitant]
  3. IRBESARTAN [Concomitant]
     Dosage: 150 MG
  4. LEVOTHYROXINE [Concomitant]
     Dosage: 50 MCG
  5. METFORMIN [Concomitant]

REACTIONS (1)
  - Liver injury [Not Recovered/Not Resolved]
